FAERS Safety Report 5205080-1 (Version None)
Quarter: 2007Q1

REPORT INFORMATION
  Report Type: 
  Country: None (occurrence: None)
  Receive Date: 20070110
  Receipt Date: 20061023
  Transmission Date: 20070707
  Serious: No
  Sender: FDA-Public Use
  Company Number: US-BRISTOL-MYERS SQUIBB COMPANY-13551312

PATIENT
  Age: 51 Year
  Sex: Female
  Weight: 82 kg

DRUGS (8)
  1. ABILIFY [Suspect]
     Indication: MENTAL DISORDER
     Route: 048
  2. ASPIRIN [Concomitant]
  3. PREVACID [Concomitant]
  4. CYMBALTA [Concomitant]
  5. ACIPHEX [Concomitant]
  6. KLONOPIN [Concomitant]
  7. FLONASE [Concomitant]
     Dosage: DOSE VALUE: 3 SPRAYS EACH NOSTRIL
     Route: 045
  8. ALLEGRA [Concomitant]

REACTIONS (2)
  - HEADACHE [None]
  - MUSCLE SPASMS [None]
